FAERS Safety Report 17402868 (Version 12)
Quarter: 2025Q4

REPORT INFORMATION
  Report Type: Report from Study
  Country: US (occurrence: US)
  Receive Date: 20200211
  Receipt Date: 20251214
  Transmission Date: 20260118
  Serious: No
  Sender: PFIZER
  Company Number: US-PFIZER INC-2020058581

PATIENT
  Age: 76 Year
  Sex: Female

DRUGS (5)
  1. XELJANZ [Suspect]
     Active Substance: TOFACITINIB CITRATE
     Indication: Rheumatoid arthritis
     Dosage: 5 MG, 2X/DAY
     Route: 048
  2. XELJANZ [Suspect]
     Active Substance: TOFACITINIB CITRATE
     Dosage: 5 MG, 1X/DAY
     Route: 048
     Dates: end: 202501
  3. XELJANZ [Suspect]
     Active Substance: TOFACITINIB CITRATE
     Dosage: 5 MG, 2X/DAY
     Route: 048
  4. XELJANZ [Suspect]
     Active Substance: TOFACITINIB CITRATE
     Dosage: 5 MG, 1X/DAY
  5. RESTASIS [Concomitant]
     Active Substance: CYCLOSPORINE
     Dosage: UNK, 2X/DAY (INSTILL 1 DROP BY OPHTHALMIC ROUTE 2 TIMES EVERY DAY INTO AFFECTED EYE(S))
     Route: 047

REACTIONS (6)
  - Musculoskeletal disorder [Unknown]
  - Pain in extremity [Unknown]
  - Blood calcium increased [Unknown]
  - Blood urea nitrogen/creatinine ratio increased [Unknown]
  - Nausea [Unknown]
  - Product prescribing issue [Unknown]
